FAERS Safety Report 11641440 (Version 1)
Quarter: 2015Q4

REPORT INFORMATION
  Report Type: Spontaneous
  Country: US (occurrence: US)
  Receive Date: 20151019
  Receipt Date: 20151019
  Transmission Date: 20160304
  Serious: No
  Sender: FDA-Public Use
  Company Number: US-LUNDBECK-DKLU1111885

PATIENT
  Sex: Female

DRUGS (4)
  1. NORTHERA [Interacting]
     Active Substance: DROXIDOPA
     Indication: CIRCULATORY COLLAPSE
  2. NORTHERA [Interacting]
     Active Substance: DROXIDOPA
     Indication: SYNCOPE
  3. CARBIDOPA/LEVODOPA [Interacting]
     Active Substance: CARBIDOPA\LEVODOPA
     Indication: PRODUCT USED FOR UNKNOWN INDICATION
     Route: 065
  4. NORTHERA [Suspect]
     Active Substance: DROXIDOPA
     Indication: PARKINSON^S DISEASE
     Route: 048
     Dates: start: 201501

REACTIONS (2)
  - Drug interaction [Unknown]
  - Presyncope [Unknown]
